FAERS Safety Report 10863637 (Version 3)
Quarter: 2015Q1

REPORT INFORMATION
  Report Type: Spontaneous
  Country: CZ (occurrence: CZ)
  Receive Date: 20150223
  Receipt Date: 20150316
  Transmission Date: 20150721
  Serious: Yes (Death, Other)
  Sender: FDA-Public Use
  Company Number: CZ-BRACCO-000055

PATIENT
  Age: 70 Year
  Sex: Female
  Weight: 98 kg

DRUGS (6)
  1. APO-FAMOTIDINE [Concomitant]
  2. APO-FENO [Concomitant]
     Active Substance: FENOFIBRATE
  3. LOKREN [Concomitant]
     Active Substance: BETAXOLOL HYDROCHLORIDE
  4. MULTIHANCE [Suspect]
     Active Substance: GADOBENATE DIMEGLUMINE
     Indication: NUCLEAR MAGNETIC RESONANCE IMAGING BRAIN
     Route: 040
     Dates: start: 20150216, end: 20150216
  5. TRITACE [Concomitant]
     Active Substance: RAMIPRIL
  6. RHEFLUIN [Concomitant]

REACTIONS (3)
  - Tremor [Not Recovered/Not Resolved]
  - Cardio-respiratory arrest [Fatal]
  - Nausea [Not Recovered/Not Resolved]

NARRATIVE: CASE EVENT DATE: 20150216
